FAERS Safety Report 11627851 (Version 1)
Quarter: 2015Q4

REPORT INFORMATION
  Report Type: Spontaneous
  Country: US (occurrence: None)
  Receive Date: 20151013
  Receipt Date: 20151013
  Transmission Date: 20160304
  Serious: No
  Sender: FDA-Public Use
  Company Number: None

PATIENT
  Age: 33 Year
  Sex: Male

DRUGS (6)
  1. NADH [Suspect]
     Active Substance: NADH
  2. METHOXETAMINE [Suspect]
     Active Substance: METHOXETAMINE
  3. PROLINTANE HYDROCHLORIDE [Suspect]
     Active Substance: PROLINTANE HYDROCHLORIDE
  4. ETIZOLAM [Suspect]
     Active Substance: ETIZOLAM
  5. 5-MAPB [Suspect]
     Active Substance: 1-(BENZOFURAN-5-YL)-N-METHYLPROPAN-2-AMINE
  6. TIANEPTINE [Suspect]
     Active Substance: TIANEPTINE

REACTIONS (3)
  - Reading disorder [None]
  - Speech disorder [None]
  - Suicidal ideation [None]

NARRATIVE: CASE EVENT DATE: 20150912
